FAERS Safety Report 8143808-1 (Version None)
Quarter: 2012Q1

REPORT INFORMATION
  Report Type: 
  Country: None (occurrence: None)
  Receive Date: 20120217
  Receipt Date: 20120207
  Transmission Date: 20120608
  Serious: Yes (Other)
  Sender: FDA-Public Use
  Company Number: CA-JNJFOC-20120205659

PATIENT
  Sex: Female
  Weight: 110 kg

DRUGS (2)
  1. REMICADE [Suspect]
     Indication: CROHN'S DISEASE
     Dosage: PATIENT HAS HAD 25-30 INFUSIONS
     Route: 042
     Dates: start: 20060101
  2. LOMOTIL [Concomitant]
     Route: 065

REACTIONS (1)
  - INTESTINAL STENOSIS [None]
